FAERS Safety Report 14540059 (Version 1)
Quarter: 2018Q1

REPORT INFORMATION
  Report Type: Spontaneous
  Country: CA (occurrence: US)
  Receive Date: 20180216
  Receipt Date: 20180216
  Transmission Date: 20180509
  Serious: No
  Sender: FDA-Public Use
  Company Number: CA-009507513-1802USA007269

PATIENT
  Sex: Male

DRUGS (5)
  1. IMIQUIMOD. [Suspect]
     Active Substance: IMIQUIMOD
     Indication: MYCOSIS FUNGOIDES STAGE II
     Dosage: UNK
     Route: 061
  2. INTERFERON ALFA-2B [Suspect]
     Active Substance: INTERFERON ALFA-2B
     Indication: MYCOSIS FUNGOIDES STAGE II
     Dosage: UNK
  3. PSORALEN [Suspect]
     Active Substance: PSORALEN
     Indication: MYCOSIS FUNGOIDES STAGE II
     Dosage: UNK
  4. INTERFERON GAMMA NOS [Suspect]
     Active Substance: INTERFERON GAMMA
     Indication: MYCOSIS FUNGOIDES STAGE II
     Dosage: UNK
  5. CLOBETASOL PROPIONATE. [Suspect]
     Active Substance: CLOBETASOL PROPIONATE
     Indication: MYCOSIS FUNGOIDES STAGE II
     Dosage: UNK
     Route: 061

REACTIONS (1)
  - Treatment failure [Unknown]
